FAERS Safety Report 8829273 (Version 1)
Quarter: 2012Q4

REPORT INFORMATION
  Report Type: Spontaneous
  Country: BR (occurrence: None)
  Receive Date: 20121004
  Receipt Date: 20121004
  Transmission Date: 20130627
  Serious: Yes (Death, Hospitalization)
  Sender: FDA-Public Use
  Company Number: IMP_06006_2012

PATIENT
  Age: 57 Year
  Sex: Male

DRUGS (1)
  1. CABERGOLINE [Suspect]
     Indication: BLOOD PROLACTIN INCREASED
     Dosage: (DF), 1X/WEEK

REACTIONS (4)
  - Intraventricular haemorrhage [None]
  - Hydrocephalus [None]
  - Pituitary haemorrhage [None]
  - Intracranial pressure increased [None]
